FAERS Safety Report 21183889 (Version 1)
Quarter: 2022Q3

REPORT INFORMATION
  Report Type: Spontaneous
  Country: US (occurrence: US)
  Receive Date: 20220808
  Receipt Date: 20220808
  Transmission Date: 20221027
  Serious: No
  Sender: FDA-Public Use
  Company Number: US-Fresenius Medical Care Renal Therapies Group-FMC-2208-001115

PATIENT
  Age: 45 Year
  Sex: Male
  Weight: 111 kg

DRUGS (2)
  1. DELFLEX WITH DEXTROSE 1.5% LOW MAGNESIUM LOW CALCIUM [Suspect]
     Active Substance: CALCIUM CHLORIDE\DEXTROSE\MAGNESIUM CHLORIDE\SODIUM CHLORIDE\SODIUM LACTATE
     Indication: End stage renal disease
     Dosage: DELFLEX AT 3300 ML FOR 4 CYCLES WITH A LAST FILL OF 2000 ML AND A DAYTIME EXCHANGE OF 2000 ML.
     Route: 033
     Dates: start: 20191024
  2. DELFLEX WITH DEXTROSE 2.5% LOW MAGNESIUM LOW CALCIUM [Suspect]
     Active Substance: CALCIUM CHLORIDE\DEXTROSE\MAGNESIUM CHLORIDE\SODIUM CHLORIDE\SODIUM LACTATE
     Indication: End stage renal disease
     Dosage: DELFLEX AT 3300 ML FOR 4 CYCLES WITH A LAST FILL OF 2000 ML AND A DAYTIME EXCHANGE OF 2000 ML.
     Route: 033
     Dates: start: 20191024

REACTIONS (2)
  - Malaise [Recovered/Resolved]
  - Hypokalaemia [Recovered/Resolved]
